FAERS Safety Report 24543598 (Version 1)
Quarter: 2024Q4

REPORT INFORMATION
  Report Type: Report from Study
  Country: CA (occurrence: CA)
  Receive Date: 20241024
  Receipt Date: 20241024
  Transmission Date: 20250114
  Serious: Yes (Other)
  Sender: ACCORD
  Company Number: None

PATIENT
  Sex: Male

DRUGS (3)
  1. METHOTREXATE [Suspect]
     Active Substance: METHOTREXATE
     Indication: Product used for unknown indication
  2. ADALIMUMAB [Suspect]
     Active Substance: ADALIMUMAB
     Indication: Uveitis
     Dosage: SINGLE DOSE PREFILLED SYRINGES, SOLUTION SUBCUTANEOUS
     Route: 065
  3. ADALIMUMAB [Suspect]
     Active Substance: ADALIMUMAB
     Indication: Uveitis
     Dosage: SINGLE DOSE PREFILLED SYRINGES, SOLUTION SUBCUTANEOUS, 1 EVERY 2 WEEKS

REACTIONS (6)
  - Discomfort [Unknown]
  - Injection site discomfort [Unknown]
  - Injection site pain [Unknown]
  - Therapy cessation [Unknown]
  - Treatment noncompliance [Unknown]
  - Uveitis [Unknown]
